FAERS Safety Report 4575883-5 (Version None)
Quarter: 2005Q1

REPORT INFORMATION
  Report Type: 
  Country: None (occurrence: None)
  Receive Date: 20050201
  Receipt Date: 20050201
  Transmission Date: 20050727
  Serious: Yes (Hospitalization)
  Sender: FDA-Public Use
  Company Number: None

PATIENT
  Age: 81 Year
  Sex: Female
  Weight: 62.5964 kg

DRUGS (2)
  1. CISPLATIN [Suspect]
     Indication: ANAL CANCER
     Dosage: 128 MG X 1 DAY INTRAVENOUS
     Route: 042
     Dates: start: 20050110, end: 20050110
  2. FLUOROURACIL [Suspect]
     Indication: ANAL CANCER
     Dosage: 1700MG  DAY OVER 4 DAYS  INTRAVENOUS
     Route: 042
     Dates: start: 20050110, end: 20050113

REACTIONS (11)
  - ASTHENIA [None]
  - BLOOD PRESSURE DECREASED [None]
  - DEHYDRATION [None]
  - DIZZINESS [None]
  - DRY SKIN [None]
  - GAIT DISTURBANCE [None]
  - HYPERHIDROSIS [None]
  - HYPOKALAEMIA [None]
  - NAUSEA [None]
  - SKIN TURGOR DECREASED [None]
  - VOMITING [None]
